FAERS Safety Report 6047072-9 (Version None)
Quarter: 2009Q1

REPORT INFORMATION
  Report Type: 
  Country: None (occurrence: None)
  Receive Date: 20090122
  Receipt Date: 20090115
  Transmission Date: 20090719
  Serious: Yes (Hospitalization)
  Sender: FDA-Public Use
  Company Number: GB-JNJFOC-20090103712

PATIENT
  Age: 72 Year
  Sex: Female

DRUGS (14)
  1. ACETAMINOPHEN [Suspect]
     Route: 048
  2. ACETAMINOPHEN [Suspect]
     Indication: MIGRAINE
     Route: 048
  3. CALCICHEW [Suspect]
     Indication: OSTEOARTHRITIS
     Route: 048
  4. CARBAMAZEPINE [Suspect]
     Indication: EPILEPSY
     Route: 048
  5. CODEINE PHOSPHATE [Suspect]
     Indication: MIGRAINE
     Route: 048
  6. GAVISCON [Suspect]
     Indication: ILL-DEFINED DISORDER
     Route: 048
  7. PANTOPRAZOLE [Suspect]
     Indication: ILL-DEFINED DISORDER
     Route: 048
  8. RISEDRONATE SODIUM [Suspect]
     Indication: OSTEOARTHRITIS
     Route: 048
  9. SERETIDE [Suspect]
     Indication: ASTHMA
     Route: 055
  10. THYROXINE [Suspect]
     Indication: HYPOTHYROIDISM
  11. VENTOLIN [Suspect]
     Indication: ASTHMA
     Route: 055
  12. WARFARIN [Suspect]
     Indication: DEEP VEIN THROMBOSIS
     Route: 048
  13. ZOLMITRIPTAN [Suspect]
     Indication: MIGRAINE
     Route: 048
  14. ALENDRONIC ACID [Concomitant]
     Indication: OSTEOARTHRITIS

REACTIONS (3)
  - CEREBROVASCULAR ACCIDENT [None]
  - COUGH [None]
  - DYSPNOEA [None]
